FAERS Safety Report 16961939 (Version 2)
Quarter: 2020Q1

REPORT INFORMATION
  Report Type: Spontaneous
  Country: BE (occurrence: BE)
  Receive Date: 20191025
  Receipt Date: 20200226
  Transmission Date: 20200409
  Serious: No
  Sender: FDA-Public Use
  Company Number: BE-ROCHE-2409729

PATIENT
  Age: 44 Year
  Sex: Female

DRUGS (3)
  1. OCREVUS [Suspect]
     Active Substance: OCRELIZUMAB
     Indication: RELAPSING-REMITTING MULTIPLE SCLEROSIS
     Dosage: NEXT INFUSION: 10/SEP/2019
     Route: 042
     Dates: start: 201803
  2. DAFALGAN [Concomitant]
     Active Substance: ACETAMINOPHEN
     Indication: PAIN
     Route: 065
     Dates: start: 20190911
  3. DAFALGAN [Concomitant]
     Active Substance: ACETAMINOPHEN
     Indication: BURNING SENSATION

REACTIONS (8)
  - Burning sensation [Recovered/Resolved]
  - Flushing [Recovered/Resolved]
  - Hypotension [Not Recovered/Not Resolved]
  - Oral herpes [Recovering/Resolving]
  - Fatigue [Not Recovered/Not Resolved]
  - Herpes virus infection [Not Recovered/Not Resolved]
  - Burning sensation [Recovered/Resolved]
  - Headache [Recovered/Resolved]

NARRATIVE: CASE EVENT DATE: 201909
